FAERS Safety Report 26022778 (Version 1)
Quarter: 2025Q4

REPORT INFORMATION
  Report Type: Spontaneous
  Country: NZ (occurrence: NZ)
  Receive Date: 20251110
  Receipt Date: 20251110
  Transmission Date: 20260117
  Serious: No
  Sender: VERTEX
  Company Number: NZ-VERTEX PHARMACEUTICALS-2025-018405

PATIENT
  Age: 10 Year
  Sex: Male

DRUGS (3)
  1. TRIKAFTA [Suspect]
     Active Substance: ELEXACAFTOR\IVACAFTOR\TEZACAFTOR
     Indication: Cystic fibrosis
     Dosage: UNKNOWN DOSAGE REGIMEN
     Route: 048
  2. METHOTREXATE [Suspect]
     Active Substance: METHOTREXATE
     Indication: Synovitis
     Dosage: UNKNOWN DOSAGE REGIMEN
     Route: 065
  3. METHOTREXATE [Suspect]
     Active Substance: METHOTREXATE
     Dosage: LOWER DOSE
     Route: 065

REACTIONS (7)
  - Granulomatous liver disease [Unknown]
  - Hepatic fibrosis [Unknown]
  - Hepatic steatosis [Unknown]
  - Cystic fibrosis hepatic disease [Unknown]
  - Hyperbilirubinaemia [Unknown]
  - Alanine aminotransferase increased [Unknown]
  - Aspartate aminotransferase increased [Unknown]
